FAERS Safety Report 8429050-5 (Version None)
Quarter: 2012Q2

REPORT INFORMATION
  Report Type: 
  Country: None (occurrence: None)
  Receive Date: 20120612
  Receipt Date: 20120601
  Transmission Date: 20120825
  Serious: Yes (Hospitalization)
  Sender: FDA-Public Use
  Company Number: FR-JNJFOC-20120603112

PATIENT
  Sex: Male

DRUGS (9)
  1. ATORVASTATIN [Concomitant]
     Route: 048
  2. HALDOL [Suspect]
     Route: 048
     Dates: end: 20120322
  3. LEPTICUR [Concomitant]
     Route: 048
  4. TRIHEXYPHENIDYL HYDROCHLORIDE [Concomitant]
     Route: 048
     Dates: end: 20120322
  5. POLYETHYLENE GLYCOL [Concomitant]
     Route: 048
  6. HALDOL [Suspect]
     Indication: MAJOR DEPRESSION
     Route: 048
  7. NOCTAMIDE [Concomitant]
     Route: 048
  8. LEPTICUR [Concomitant]
     Route: 048
  9. OXAZEPAM [Concomitant]
     Route: 048

REACTIONS (3)
  - EXTRAPYRAMIDAL DISORDER [None]
  - DRY EYE [None]
  - URINARY RETENTION [None]
